FAERS Safety Report 4869290-5 (Version None)
Quarter: 2005Q4

REPORT INFORMATION
  Report Type: 
  Country: None (occurrence: None)
  Receive Date: 20051230
  Receipt Date: 20051227
  Transmission Date: 20060501
  Serious: Yes (Death)
  Sender: FDA-Public Use
  Company Number: JP-BRISTOL-MYERS SQUIBB COMPANY-13230289

PATIENT
  Age: 61 Year
  Sex: Male

DRUGS (5)
  1. VIDEX EC [Suspect]
     Indication: HIV INFECTION
     Route: 048
     Dates: start: 20010605
  2. ZERIT [Suspect]
     Indication: HIV INFECTION
     Route: 048
     Dates: start: 20000507
  3. STOCRIN [Suspect]
     Indication: HIV INFECTION
     Route: 048
     Dates: start: 20020604
  4. VIDEX [Concomitant]
     Route: 048
     Dates: start: 20000507, end: 20010604
  5. VIRACEPT [Concomitant]
     Route: 048
     Dates: start: 20030507

REACTIONS (1)
  - DEATH [None]
